FAERS Safety Report 13517251 (Version 1)
Quarter: 2017Q2

REPORT INFORMATION
  Report Type: Spontaneous
  Country: US (occurrence: US)
  Receive Date: 20170504
  Receipt Date: 20170504
  Transmission Date: 20170830
  Serious: Yes (Hospitalization)
  Sender: FDA-Public Use
  Company Number: None

PATIENT
  Age: 17 Year
  Sex: Female
  Weight: 113.5 kg

DRUGS (1)
  1. NEXPLANON [Suspect]
     Active Substance: ETONOGESTREL
     Indication: CONTRACEPTION
     Dosage: 1IMPLANT THREE YEARS GIVEN INTO/UNDER THE SKIN
     Route: 058
     Dates: start: 20160301, end: 20170201

REACTIONS (4)
  - Device breakage [None]
  - Menorrhagia [None]
  - Thrombosis [None]
  - Dysmenorrhoea [None]

NARRATIVE: CASE EVENT DATE: 20160301
